FAERS Safety Report 8063347-6 (Version None)
Quarter: 2012Q1

REPORT INFORMATION
  Report Type: 
  Country: None (occurrence: None)
  Receive Date: 20120123
  Receipt Date: 20120111
  Transmission Date: 20120608
  Serious: Yes (Other)
  Sender: FDA-Public Use
  Company Number: PHHY2010CA03980

PATIENT
  Sex: Female

DRUGS (10)
  1. GLYBURIDE [Concomitant]
     Dosage: 10 MG, UNK
  2. SANDOSTATIN LAR [Suspect]
     Indication: ACROMEGALY
     Dosage: 30 MG, QMO
     Route: 030
     Dates: start: 19990823
  3. CRESTOR [Concomitant]
     Dosage: 10 MG, DAILY
  4. HYDROCHLOROTHIAZIDE [Concomitant]
     Dosage: 12.5 MG, DAILY
  5. ASPIRIN [Concomitant]
     Dosage: 20 MG, DAILY
  6. RHOTRAL [Concomitant]
     Dosage: 400 MG, BID
  7. METFORMIN HCL [Concomitant]
     Dosage: 850 MG, TID
  8. ACLON [Concomitant]
     Dosage: 30 MG, UNK
  9. ADALAT CC [Concomitant]
     Dosage: 30 MG, DAILY
  10. ATARAX [Concomitant]
     Dosage: 150 MG, DAILY

REACTIONS (9)
  - BALANCE DISORDER [None]
  - UPPER LIMB FRACTURE [None]
  - FALL [None]
  - NEPHROLITHIASIS [None]
  - BLOOD URINE PRESENT [None]
  - ANGINA PECTORIS [None]
  - PAIN [None]
  - ARTHRALGIA [None]
  - BLOOD PRESSURE SYSTOLIC INCREASED [None]
